FAERS Safety Report 16358519 (Version 1)
Quarter: 2019Q2

REPORT INFORMATION
  Report Type: Spontaneous
  Country: US (occurrence: US)
  Receive Date: 20190418
  Receipt Date: 20190418
  Transmission Date: 20190711
  Serious: Yes (Other)
  Sender: FDA-Public Use
  Company Number: None

PATIENT
  Age: 68 Year
  Sex: Female
  Weight: 72.57 kg

DRUGS (4)
  1. BIOTIN [Concomitant]
     Active Substance: BIOTIN
  2. ALAVERT ALLERGY SINUS D-12 [Suspect]
     Active Substance: LORATADINE\PSEUDOEPHEDRINE SULFATE
     Indication: SEASONAL ALLERGY
     Route: 048
     Dates: start: 20190323, end: 20190324
  3. MULTI-VITAMIN + MINERALS [Concomitant]
  4. L-LYSINE [Concomitant]
     Active Substance: LYSINE

REACTIONS (6)
  - Hypoaesthesia [None]
  - Dysarthria [None]
  - Chills [None]
  - Dizziness [None]
  - Pyrexia [None]
  - Somnolence [None]

NARRATIVE: CASE EVENT DATE: 20190324
